FAERS Safety Report 22630230 (Version 1)
Quarter: 2023Q2

REPORT INFORMATION
  Report Type: Spontaneous
  Country: CZ (occurrence: CZ)
  Receive Date: 20230622
  Receipt Date: 20230622
  Transmission Date: 20230721
  Serious: Yes (Other)
  Sender: FDA-Public Use
  Company Number: CZ-BRISTOL-MYERS SQUIBB COMPANY-2023-087304

PATIENT
  Age: 68 Year
  Sex: Male

DRUGS (4)
  1. NIVOLUMAB [Suspect]
     Active Substance: NIVOLUMAB
     Indication: Renal cancer metastatic
     Dosage: 1X3T
     Route: 042
     Dates: start: 202211
  2. NIVOLUMAB [Suspect]
     Active Substance: NIVOLUMAB
     Dosage: FOR 4 DOSES
     Dates: start: 202301
  3. NIVOLUMAB [Suspect]
     Active Substance: NIVOLUMAB
     Dosage: 1X3T
     Dates: start: 2023
  4. IPILIMUMAB [Suspect]
     Active Substance: IPILIMUMAB
     Indication: Renal cancer metastatic
     Dosage: FOR 4 DOSES, DOSE FREQUENCY: 1X2T
     Route: 042
     Dates: start: 20230101

REACTIONS (3)
  - Off label use [Unknown]
  - Hepatotoxicity [Recovering/Resolving]
  - Acute respiratory distress syndrome [Recovered/Resolved]

NARRATIVE: CASE EVENT DATE: 20230101
